FAERS Safety Report 4810964-X (Version None)
Quarter: 2005Q4

REPORT INFORMATION
  Report Type: 
  Country: None (occurrence: None)
  Receive Date: 20051025
  Receipt Date: 20051017
  Transmission Date: 20060501
  Serious: Yes (Death, Other)
  Sender: FDA-Public Use
  Company Number: 2005-US-00059

PATIENT
  Age: 51 Year
  Sex: Male

DRUGS (1)
  1. CLOZAPINE [Suspect]
     Indication: SCHIZOPHRENIA
     Dosage: 400 MG, QD, ORAL
     Route: 048
     Dates: start: 20050101, end: 20050701

REACTIONS (4)
  - AORTIC VALVE REPLACEMENT [None]
  - FALL [None]
  - INCISIONAL DRAINAGE [None]
  - POSTOPERATIVE WOUND COMPLICATION [None]
